FAERS Safety Report 6885722-5 (Version None)
Quarter: 2010Q3

REPORT INFORMATION
  Report Type: 
  Country: None (occurrence: None)
  Receive Date: 20100729
  Receipt Date: 20100716
  Transmission Date: 20110219
  Serious: Yes (Other)
  Sender: FDA-Public Use
  Company Number: GB-MYLANLABS-2010S1012669

PATIENT
  Age: 45 Year
  Sex: Female

DRUGS (19)
  1. DIHYDROCODEINE BITARTRATE INJ [Suspect]
     Indication: PAIN
     Dates: end: 20100616
  2. ZOLPIDEM [Suspect]
     Indication: INSOMNIA
     Dates: end: 20100618
  3. CAFFEINE [Suspect]
     Indication: INSOMNIA
  4. DIAZEPAM [Suspect]
     Indication: ANXIETY
  5. HALOPERIDOL [Suspect]
     Indication: PSYCHOTIC DISORDER
  6. VALPROATE SODIUM [Suspect]
     Indication: AFFECTIVE DISORDER
  7. AMLODIPINE [Concomitant]
     Indication: PRODUCT USED FOR UNKNOWN INDICATION
  8. ASPIRIN [Concomitant]
     Indication: PRODUCT USED FOR UNKNOWN INDICATION
  9. CAFFEINE [Concomitant]
     Indication: PRODUCT USED FOR UNKNOWN INDICATION
  10. CANDESARTAN CILEXETIL [Concomitant]
     Indication: PRODUCT USED FOR UNKNOWN INDICATION
  11. DIHYDROCODEINE BITARTRATE INJ [Concomitant]
     Indication: PRODUCT USED FOR UNKNOWN INDICATION
  12. LANSOPRAZOLE [Concomitant]
     Indication: PRODUCT USED FOR UNKNOWN INDICATION
  13. PROCYCLIDINE HYDROCHLORIDE 2MG TAB [Concomitant]
     Indication: DIABETES MELLITUS
  14. SIMVASTATIN [Concomitant]
     Indication: PRODUCT USED FOR UNKNOWN INDICATION
  15. ZOLPIDEM [Concomitant]
  16. VALPROATE SODIUM [Concomitant]
     Indication: PRODUCT USED FOR UNKNOWN INDICATION
  17. CETIRIZINE HCL [Concomitant]
     Indication: PRODUCT USED FOR UNKNOWN INDICATION
  18. CITALOPRAM [Concomitant]
     Indication: PRODUCT USED FOR UNKNOWN INDICATION
  19. INSULIN [Concomitant]
     Indication: PRODUCT USED FOR UNKNOWN INDICATION

REACTIONS (5)
  - CONFUSIONAL STATE [None]
  - DRUG ABUSE [None]
  - DRUG INTERACTION [None]
  - HALLUCINATION [None]
  - SEDATION [None]
